FAERS Safety Report 4301077-4 (Version None)
Quarter: 2004Q1

REPORT INFORMATION
  Report Type: 
  Country: None (occurrence: None)
  Receive Date: 20040219
  Receipt Date: 20031206
  Transmission Date: 20041129
  Serious: Yes (Hospitalization, Other)
  Sender: FDA-Public Use
  Company Number: KII-2003-0007111

PATIENT
  Age: 45 Year
  Sex: Female

DRUGS (10)
  1. MORPHINE SULFATE [Suspect]
     Indication: PAIN
     Dosage: 15, ORAL
     Route: 048
  2. MORPHINE [Suspect]
     Indication: PAIN
     Dosage: 15, ORAL
     Route: 048
  3. MARIJUANA (CANNABIS) [Suspect]
     Indication: DRUG USE FOR UNKNOWN INDICATION
  4. TRICYCLIC ANTIDEPRESSANTS() [Suspect]
     Indication: DRUG USE FOR UNKNOWN INDICATION
  5. BACLOFEN [Concomitant]
  6. FUROSEMIDE [Concomitant]
  7. ANTIHYPERLIPIDEMIC [Concomitant]
  8. PROTON PUMP INHIBITOR [Concomitant]
  9. LISINOPRIL [Concomitant]
  10. PIROXICAM [Concomitant]

REACTIONS (10)
  - ABNORMAL BEHAVIOUR [None]
  - CONFUSIONAL STATE [None]
  - DEPRESSED LEVEL OF CONSCIOUSNESS [None]
  - HAEMOGLOBIN DECREASED [None]
  - HEADACHE [None]
  - HEART RATE INCREASED [None]
  - HYPOTENSION [None]
  - MULTIPLE DRUG OVERDOSE [None]
  - RESPIRATORY DEPRESSION [None]
  - SOMNOLENCE [None]
